FAERS Safety Report 7270301-0 (Version None)
Quarter: 2010Q4

REPORT INFORMATION
  Report Type: 
  Country: None (occurrence: None)
  Receive Date: 20101130
  Receipt Date: 20100814
  Transmission Date: 20110411
  Serious: Yes (Other)
  Sender: FDA-Public Use
  Company Number: US201008004339

PATIENT
  Age: 72 Year

DRUGS (1)
  1. BYETTA [Suspect]

REACTIONS (2)
  - MALAISE [None]
  - RENAL DISORDER [None]
